FAERS Safety Report 4324690-7 (Version None)
Quarter: 2004Q1

REPORT INFORMATION
  Report Type: 
  Country: None (occurrence: None)
  Receive Date: 20040323
  Receipt Date: 20040310
  Transmission Date: 20041129
  Serious: Yes (Hospitalization, Other)
  Sender: FDA-Public Use
  Company Number: CA-JNJFOC-20040301259

PATIENT
  Age: 56 Year
  Sex: Male

DRUGS (6)
  1. INFLIXIMAB (INFLIXIMAB, RECOMBINANT) LYOPHILIZED POWDER [Suspect]
     Indication: PSORIATIC ARTHROPATHY
     Dosage: 5 MG/KG, INTRAVENOUS
     Route: 042
     Dates: start: 20020105
  2. INFLIXIMAB (INFLIXIMAB, RECOMBINANT) LYOPHILIZED POWDER [Suspect]
     Indication: PSORIATIC ARTHROPATHY
     Dosage: 5 MG/KG, INTRAVENOUS
     Route: 042
     Dates: start: 20031210
  3. PLACEBO (PLACEBO) LYOPHILIZED POWDER [Suspect]
     Indication: PSORIATIC ARTHROPATHY
     Dosage: 5 MG/KG, INTRAVENOUS
     Route: 042
     Dates: start: 20020105, end: 20020501
  4. METHOTREXATE [Concomitant]
  5. FOLIC ACID [Concomitant]
  6. FELDENE [Concomitant]

REACTIONS (17)
  - ABDOMINAL PAIN UPPER [None]
  - BACK PAIN [None]
  - BLOOD PRESSURE INCREASED [None]
  - BRONCHITIS [None]
  - CORONARY ARTERY DISEASE [None]
  - DIZZINESS [None]
  - FAECES DISCOLOURED [None]
  - HEPATIC STEATOSIS [None]
  - INFLUENZA [None]
  - INFUSION RELATED REACTION [None]
  - LIVER SCAN ABNORMAL [None]
  - LYMPHADENOPATHY [None]
  - MARKEDLY REDUCED DIETARY INTAKE [None]
  - METASTASES TO LUNG [None]
  - PANCREATIC CARCINOMA NON-RESECTABLE [None]
  - TENDONITIS [None]
  - VASCULAR CALCIFICATION [None]
